FAERS Safety Report 6391086-6 (Version None)
Quarter: 2009Q4

REPORT INFORMATION
  Report Type: 
  Country: None (occurrence: None)
  Receive Date: 20091006
  Receipt Date: 20091006
  Transmission Date: 20100525
  Serious: Yes (Other)
  Sender: FDA-Public Use
  Company Number: None

PATIENT
  Sex: Female
  Weight: 114.5 kg

DRUGS (2)
  1. TIAGABINE HCL [Suspect]
     Indication: GENERALISED ANXIETY DISORDER
     Dosage: 2MG TWICE DAILY AS NEEDED ORAL
     Route: 048
     Dates: start: 20090928, end: 20091004
  2. TIAGABINE HCL [Suspect]
     Indication: PRURITUS
     Dosage: 2MG TWICE DAILY AS NEEDED ORAL
     Route: 048
     Dates: start: 20090928, end: 20091004

REACTIONS (4)
  - DRUG ABUSE [None]
  - DRUG WITHDRAWAL SYNDROME [None]
  - HALLUCINATIONS, MIXED [None]
  - MANIA [None]
